FAERS Safety Report 8287435-4 (Version None)
Quarter: 2012Q2

REPORT INFORMATION
  Report Type: 
  Country: None (occurrence: None)
  Receive Date: 20120416
  Receipt Date: 20120403
  Transmission Date: 20120825
  Serious: No
  Sender: FDA-Public Use
  Company Number: US-BAYER-2012-033516

PATIENT

DRUGS (3)
  1. ALEVE (CAPLET) [Suspect]
     Indication: FIBROMYALGIA
     Dosage: 9-12 PILLS A DAY FOR OVER A YEAR
     Route: 048
  2. ALEVE (CAPLET) [Suspect]
     Indication: HEADACHE
     Dosage: UNSPECIFIED DOSE
     Route: 048
  3. ALEVE (CAPLET) [Suspect]
     Indication: ARTHRITIS
     Dosage: 2-4 PILLS A DAY FOR OVER A YEAR
     Route: 048

REACTIONS (5)
  - FIBROMYALGIA [None]
  - NO ADVERSE EVENT [None]
  - ARTHRITIS [None]
  - PAIN [None]
  - HYPERSOMNIA [None]
